FAERS Safety Report 9233170 (Version 1)
Quarter: 2013Q2

REPORT INFORMATION
  Report Type: Spontaneous
  Country: US (occurrence: None)
  Receive Date: 20130415
  Receipt Date: 20130415
  Transmission Date: 20140414
  Serious: Yes (Hospitalization)
  Sender: FDA-Public Use
  Company Number: None

PATIENT
  Age: 5 Year
  Sex: Male
  Weight: 23.5 kg

DRUGS (1)
  1. SULFAMETH-TRIMETH [Suspect]
     Indication: ERYTHEMA MULTIFORME
     Dosage: 10 ML EVERY 12 HRS FOR 10 DAYS
     Dates: start: 20130322, end: 20130331

REACTIONS (6)
  - Rash generalised [None]
  - Eye irritation [None]
  - Ear swelling [None]
  - Lip swelling [None]
  - Pruritus [None]
  - Chapped lips [None]
